FAERS Safety Report 11506956 (Version 1)
Quarter: 2015Q3

REPORT INFORMATION
  Report Type: Spontaneous
  Country: GB (occurrence: GB)
  Receive Date: 20150915
  Receipt Date: 20150915
  Transmission Date: 20151125
  Serious: Yes (Life-Threatening, Hospitalization, Disabling, Other)
  Sender: FDA-Public Use
  Company Number: GB-WATSON-2015-12585

PATIENT
  Age: 39 Year
  Sex: Male
  Weight: 77 kg

DRUGS (2)
  1. CITALOPRAM [Suspect]
     Active Substance: CITALOPRAM HYDROBROMIDE
     Indication: DEPRESSION
     Dosage: 20 MG, UNK
     Route: 048
     Dates: start: 20150201
  2. WARFARIN [Concomitant]
     Active Substance: WARFARIN
     Indication: PRODUCT USED FOR UNKNOWN INDICATION
     Dosage: UNK
     Route: 065

REACTIONS (4)
  - Musculoskeletal stiffness [Unknown]
  - Pulmonary embolism [Unknown]
  - Deep vein thrombosis [Unknown]
  - Pain [Unknown]

NARRATIVE: CASE EVENT DATE: 20150312
